FAERS Safety Report 20851712 (Version 5)
Quarter: 2023Q1

REPORT INFORMATION
  Report Type: Spontaneous
  Country: NL (occurrence: NL)
  Receive Date: 20220520
  Receipt Date: 20230103
  Transmission Date: 20230417
  Serious: Yes (Other)
  Sender: FDA-Public Use
  Company Number: NL-FRESENIUS KABI-FK202205223

PATIENT
  Age: 38 Year
  Sex: Female

DRUGS (16)
  1. BORTEZOMIB [Suspect]
     Active Substance: BORTEZOMIB
     Indication: Glomerulonephritis membranous
     Dosage: UNK,2 CYCLICAL
     Route: 065
     Dates: start: 20190528
  2. MYCOPHENOLIC ACID [Suspect]
     Active Substance: MYCOPHENOLIC ACID
     Indication: Glomerulonephritis membranous
     Dosage: CUMULATIVE DOSE, 4 G
     Route: 065
     Dates: start: 201606
  3. PREDNISOLONE [Suspect]
     Active Substance: PREDNISOLONE
     Indication: Glomerulonephritis membranous
     Dosage: CUMULATIVE DOSE, 4 G
     Route: 065
     Dates: start: 201606
  4. CYCLOPHOSPHAMIDE [Suspect]
     Active Substance: CYCLOPHOSPHAMIDE
     Indication: Glomerulonephritis membranous
     Dosage: 1.5 MILLIGRAM/KILOGRAM, ONCE A DAY
     Route: 048
     Dates: start: 20180907
  5. DARATUMUMAB [Suspect]
     Active Substance: DARATUMUMAB
     Indication: Glomerulonephritis membranous
     Dosage: 16 MICROGRAM/KILOGRAM
     Route: 042
  6. DARZALEX [Suspect]
     Active Substance: DARATUMUMAB
     Indication: Glomerulonephritis membranous
     Dosage: 16 MILLIGRAM/KILOGRAM, EVERY WEEK
     Route: 042
     Dates: start: 20200623
  7. DEXAMETHASONE [Suspect]
     Active Substance: DEXAMETHASONE
     Indication: Glomerulonephritis membranous
     Dosage: UNK, 2 CYCLICAL
     Route: 065
     Dates: start: 20190528
  8. RITUXIMAB [Suspect]
     Active Substance: RITUXIMAB
     Indication: Glomerulonephritis membranous
     Dosage: 1 GRAM
     Route: 041
  9. RITUXIMAB [Suspect]
     Active Substance: RITUXIMAB
     Dosage: 1 GRAM, TWO TIMES A DAY
     Route: 041
  10. RITUXIMAB [Suspect]
     Active Substance: RITUXIMAB
     Dosage: UNK
     Route: 065
     Dates: start: 201606
  11. RITUXIMAB [Suspect]
     Active Substance: RITUXIMAB
     Dosage: 2 GRAM(IV 2X1G )
     Route: 042
     Dates: start: 201712
  12. RITUXIMAB [Suspect]
     Active Substance: RITUXIMAB
     Dosage: 1 GRAM(IV 1G )
     Route: 042
     Dates: start: 20190318
  13. RITUXIMAB [Suspect]
     Active Substance: RITUXIMAB
     Dosage: 1 GRAM(IV 1G )
     Route: 042
     Dates: start: 20190403
  14. RITUXIMAB [Suspect]
     Active Substance: RITUXIMAB
     Dosage: 1 GRAM(2X1G )
     Route: 065
     Dates: start: 20210212
  15. VELCADE [Suspect]
     Active Substance: BORTEZOMIB
     Indication: Glomerulonephritis membranous
     Dosage: UNK
     Route: 065
     Dates: start: 20190528
  16. DARATUMUMAB [Concomitant]
     Active Substance: DARATUMUMAB
     Indication: Glomerulonephritis membranous
     Dosage: 16 MILLIGRAM/KILOGRAM, EVERY WEEK(16 MG/KG, WEEKLY )
     Route: 065

REACTIONS (7)
  - Neuropathy peripheral [Unknown]
  - Leukopenia [Unknown]
  - Autoimmune disorder [Unknown]
  - Drug intolerance [Recovering/Resolving]
  - Drug ineffective [Unknown]
  - Product use in unapproved indication [Unknown]
  - Off label use [Unknown]

NARRATIVE: CASE EVENT DATE: 20181001
